FAERS Safety Report 12010482 (Version 1)
Quarter: 2016Q1

REPORT INFORMATION
  Report Type: Spontaneous
  Country: JP (occurrence: JP)
  Receive Date: 20160205
  Receipt Date: 20160205
  Transmission Date: 20160526
  Serious: Yes (Life-Threatening)
  Sender: FDA-Public Use
  Company Number: JP-BAYER-2016-022251

PATIENT
  Age: 59 Year
  Sex: Male

DRUGS (1)
  1. GADOVIST [Suspect]
     Active Substance: GADOBUTROL
     Dosage: ONCE
     Route: 042
     Dates: start: 20160203, end: 20160203

REACTIONS (5)
  - Shock [Recovered/Resolved]
  - Peripheral coldness [Recovered/Resolved]
  - Blood pressure immeasurable [Recovered/Resolved]
  - Pallor [Recovered/Resolved]
  - Feeling abnormal [Recovered/Resolved]

NARRATIVE: CASE EVENT DATE: 20160203
